FAERS Safety Report 9116790 (Version 1)
Quarter: 2013Q1

REPORT INFORMATION
  Report Type: Spontaneous
  Country: US (occurrence: US)
  Receive Date: 20130225
  Receipt Date: 20130225
  Transmission Date: 20140127
  Serious: Yes (Other)
  Sender: FDA-Public Use
  Company Number: US-COVIDIEN/TYCO HEALTHCARE/MALLINCKRODT-T201300851

PATIENT
  Age: 10 Year
  Sex: Male

DRUGS (10)
  1. METHADOSE [Suspect]
     Indication: PAIN
     Dosage: 0.3 MG/KG/DAY
  2. METHADOSE [Suspect]
     Indication: GRAFT VERSUS HOST DISEASE
     Dosage: 0.13 MG/KG/DAY
  3. LORAZEPAM [Concomitant]
     Indication: ANXIETY
     Dosage: UNK
  4. METHYLPREDNISOLONE [Concomitant]
     Indication: GRAFT VERSUS HOST DISEASE
     Dosage: UNK
  5. QUETIAPINE [Concomitant]
     Indication: ABNORMAL BEHAVIOUR
     Dosage: UNK
  6. MELATONIN [Concomitant]
     Indication: INSOMNIA
     Dosage: UNK
  7. GABAPENTIN [Concomitant]
     Indication: PAIN
     Dosage: UNK
  8. CLONIDINE [Concomitant]
     Indication: HYPERTENSION
     Dosage: UNK
     Route: 062
  9. DIURETICS [Concomitant]
     Indication: HYPERTENSION
     Dosage: UNK
  10. NALOXONE [Concomitant]
     Dosage: UNK

REACTIONS (1)
  - Sleep apnoea syndrome [Unknown]
